FAERS Safety Report 8204169-2 (Version None)
Quarter: 2012Q1

REPORT INFORMATION
  Report Type: 
  Country: None (occurrence: None)
  Receive Date: 20120313
  Receipt Date: 20120228
  Transmission Date: 20120608
  Serious: Yes (Death, Life-Threatening, Other)
  Sender: FDA-Public Use
  Company Number: JP-ASTELLAS-2011JP009120

PATIENT
  Sex: Female

DRUGS (22)
  1. NABUMETONE [Concomitant]
     Indication: RHEUMATOID ARTHRITIS
     Route: 065
  2. SULFAMETHOXAZOLE AND TRIMETHOPRIM [Suspect]
     Dosage: 9 DF, UNKNOWN/D
     Route: 048
     Dates: start: 20110907, end: 20110920
  3. AMLODIPINE [Concomitant]
     Route: 065
  4. ASPIRIN [Concomitant]
     Route: 065
  5. ETIZOLAM [Concomitant]
     Route: 065
  6. METHOTREXATE [Suspect]
     Dosage: 10 MG, WEEKLY
     Route: 065
     Dates: start: 20110301, end: 20110905
  7. CALCIUM PANTOTHENATE [Concomitant]
     Route: 065
  8. VALSARTAN [Concomitant]
     Route: 065
  9. MECOBALAMIN [Concomitant]
     Route: 065
  10. ASCORBIC ACID [Concomitant]
     Route: 065
  11. PROGRAF [Suspect]
     Indication: RHEUMATOID ARTHRITIS
     Dosage: UNK
     Route: 065
     Dates: end: 20110101
  12. FUNGUARD [Suspect]
     Dosage: 150 MG, UNKNOWN/D
     Route: 065
     Dates: start: 20110909, end: 20110919
  13. SULFASALAZINE [Concomitant]
     Dosage: UNK
     Route: 065
  14. ISOSORBIDE MONONITRATE [Concomitant]
     Route: 065
  15. ATORVASTATIN CALCIUM [Concomitant]
     Route: 065
  16. FUNGUARD [Suspect]
     Dosage: 150 MG, UNKNOWN/D
     Dates: start: 20110928, end: 20111011
  17. ORENCIA [Suspect]
     Indication: RHEUMATOID ARTHRITIS
     Dosage: 500 MG, UNKNOWN/D
     Route: 041
     Dates: start: 20110517
  18. METHOTREXATE [Suspect]
     Indication: RHEUMATOID ARTHRITIS
     Dosage: 10.5 MG, WEEKLY
     Route: 065
     Dates: start: 20110121, end: 20110228
  19. SULFAMETHOXAZOLE AND TRIMETHOPRIM [Suspect]
     Dosage: 9 DF, UNKNOWN/D
     Route: 048
     Dates: start: 20111005
  20. RISEDRONATE SODIUM [Concomitant]
     Route: 065
  21. SENNA [Concomitant]
     Route: 065
  22. FOLIC ACID [Concomitant]
     Route: 065

REACTIONS (10)
  - CANDIDA TEST POSITIVE [None]
  - HEPATORENAL SYNDROME [None]
  - GENERALISED OEDEMA [None]
  - INTERSTITIAL LUNG DISEASE [None]
  - HYPONATRAEMIA [None]
  - METABOLIC ACIDOSIS [None]
  - DISSEMINATED INTRAVASCULAR COAGULATION [None]
  - PNEUMOCYSTIS JIROVECI PNEUMONIA [None]
  - HYPOALBUMINAEMIA [None]
  - ENTEROCOCCUS TEST POSITIVE [None]
